FAERS Safety Report 10069079 (Version 2)
Quarter: 2014Q2

REPORT INFORMATION
  Report Type: Spontaneous
  Country: JP (occurrence: JP)
  Receive Date: 20140409
  Receipt Date: 20140530
  Transmission Date: 20141212
  Serious: Yes (Hospitalization)
  Sender: FDA-Public Use
  Company Number: PHHY2014JP040973

PATIENT
  Age: 12 Year
  Sex: Male

DRUGS (4)
  1. CICLOSPORIN [Suspect]
     Indication: NEPHROTIC SYNDROME
     Route: 048
  2. PREDNISOLONE [Suspect]
     Indication: NEPHROTIC SYNDROME
  3. METHYLPREDNISOLONE [Suspect]
     Indication: NEPHROTIC SYNDROME
     Route: 042
  4. RITUXIMAB [Suspect]
     Dosage: 375 MG/M2, UNK

REACTIONS (7)
  - Aspergillus infection [Recovered/Resolved]
  - Cough [Recovered/Resolved]
  - Dyspnoea [Recovered/Resolved]
  - Blood beta-D-glucan increased [Recovered/Resolved]
  - Lung disorder [Recovered/Resolved]
  - Hypertensive encephalopathy [Unknown]
  - Drug ineffective [Unknown]
